FAERS Safety Report 9860570 (Version 2)
Quarter: 2014Q1

REPORT INFORMATION
  Report Type: Spontaneous
  Country: US (occurrence: US)
  Receive Date: 20140202
  Receipt Date: 20140202
  Transmission Date: 20141002
  Serious: Yes (Other)
  Sender: FDA-Public Use
  Company Number: US-GE HEALTHCARE MEDICAL DIAGNOSTICS-OSCN-PR-1002S-0050

PATIENT
  Age: 40 Year
  Sex: Female

DRUGS (11)
  1. GADOLINIUM (UNSPECIFIED) [Suspect]
     Indication: PRODUCT USED FOR UNKNOWN INDICATION
     Route: 042
     Dates: start: 19931222, end: 19931222
  2. GADOLINIUM (UNSPECIFIED) [Suspect]
     Route: 042
     Dates: start: 19931228, end: 19931228
  3. MAGNEVIST [Suspect]
     Indication: VENA CAVA EMBOLISM
     Route: 042
     Dates: start: 20060120, end: 20060120
  4. MAGNEVIST [Suspect]
     Indication: JUGULAR VEIN THROMBOSIS
     Route: 042
     Dates: start: 20060123, end: 20060123
  5. MAGNEVIST [Suspect]
     Indication: NECK EXPLORATION
  6. MAGNEVIST [Suspect]
     Indication: PRESYNCOPE
  7. ZEMPLAR [Concomitant]
     Indication: PRODUCT USED FOR UNKNOWN INDICATION
  8. RENAL CAPS [Concomitant]
     Indication: PRODUCT USED FOR UNKNOWN INDICATION
  9. IRON [Concomitant]
     Indication: PRODUCT USED FOR UNKNOWN INDICATION
     Dates: start: 2009
  10. ERYTHROPOIETIN [Concomitant]
     Indication: PRODUCT USED FOR UNKNOWN INDICATION
     Dates: start: 1995
  11. SYNTHROID [Concomitant]
     Indication: PRODUCT USED FOR UNKNOWN INDICATION

REACTIONS (1)
  - Nephrogenic systemic fibrosis [Not Recovered/Not Resolved]
